FAERS Safety Report 7674115-9 (Version None)
Quarter: 2011Q3

REPORT INFORMATION
  Report Type: 
  Country: None (occurrence: None)
  Receive Date: 20110808
  Receipt Date: 20110725
  Transmission Date: 20111222
  Serious: Yes (Death, Disabling)
  Sender: FDA-Public Use
  Company Number: IPC201107-002558

PATIENT
  Sex: Female

DRUGS (4)
  1. REGLAN [Suspect]
     Indication: ABDOMINAL DISTENSION
  2. REGLAN [Suspect]
     Indication: DYSPEPSIA
  3. METOCLOPRAMIDE [Suspect]
     Indication: DYSPEPSIA
     Dosage: ORAL
     Route: 048
  4. METOCLOPRAMIDE [Suspect]
     Indication: ABDOMINAL DISTENSION
     Dosage: ORAL
     Route: 048

REACTIONS (1)
  - TARDIVE DYSKINESIA [None]
